APPROVED DRUG PRODUCT: OXYCODONE AND ASPIRIN (HALF-STRENGTH)
Active Ingredient: ASPIRIN; OXYCODONE HYDROCHLORIDE; OXYCODONE TEREPHTHALATE
Strength: 325MG;2.25MG;0.19MG
Dosage Form/Route: TABLET;ORAL
Application: A087742 | Product #001
Applicant: ROXANE LABORATORIES INC
Approved: Jun 4, 1982 | RLD: No | RS: No | Type: DISCN